FAERS Safety Report 14411608 (Version 1)
Quarter: 2018Q1

REPORT INFORMATION
  Report Type: Spontaneous
  Country: RU (occurrence: RU)
  Receive Date: 20180119
  Receipt Date: 20180119
  Transmission Date: 20180509
  Serious: Yes (Other)
  Sender: FDA-Public Use
  Company Number: RU-ASTRAZENECA-2017SF19861

PATIENT
  Age: 68 Year
  Sex: Male
  Weight: 54 kg

DRUGS (8)
  1. ATORIS [Concomitant]
     Active Substance: ATORVASTATIN CALCIUM
  2. BRILINTA [Suspect]
     Active Substance: TICAGRELOR
     Indication: STENT PLACEMENT
     Route: 048
     Dates: start: 201704
  3. PRESTARIUM [Concomitant]
     Active Substance: PERINDOPRIL
  4. VEROSPIRON [Concomitant]
     Active Substance: SPIRONOLACTONE
  5. CARDIOMAGNYL [Concomitant]
     Active Substance: ASPIRIN\MAGNESIUM HYDROXIDE
  6. NOLPAZA [Concomitant]
     Active Substance: PANTOPRAZOLE SODIUM
  7. CONCOR [Concomitant]
     Active Substance: BISOPROLOL FUMARATE
  8. OMEGA-3 TRIGLYCERIDES [Concomitant]

REACTIONS (4)
  - Product use in unapproved indication [Unknown]
  - Off label use [Unknown]
  - Angina pectoris [Not Recovered/Not Resolved]
  - Asthenia [Not Recovered/Not Resolved]

NARRATIVE: CASE EVENT DATE: 201712
